FAERS Safety Report 8500431-4 (Version None)
Quarter: 2012Q3

REPORT INFORMATION
  Report Type: 
  Country: None (occurrence: None)
  Receive Date: 20120710
  Receipt Date: 20120702
  Transmission Date: 20120928
  Serious: Yes (Hospitalization)
  Sender: FDA-Public Use
  Company Number: US-GLAXOSMITHKLINE-A0983040A

PATIENT
  Age: 18 Year
  Sex: Male

DRUGS (7)
  1. PAXIL [Suspect]
     Indication: PRODUCT USED FOR UNKNOWN INDICATION
     Dosage: 40MG TWICE PER DAY
     Route: 048
     Dates: start: 19910101
  2. LORAZEPAM [Concomitant]
  3. CLONAZEPAM [Concomitant]
  4. RISPERDAL [Concomitant]
  5. ADDERALL 5 [Concomitant]
  6. ZOLOFT [Concomitant]
  7. RITALIN [Concomitant]

REACTIONS (7)
  - SUICIDE ATTEMPT [None]
  - PANIC ATTACK [None]
  - DEPRESSION [None]
  - ANXIETY [None]
  - OVERDOSE [None]
  - SUICIDAL IDEATION [None]
  - INTENTIONAL OVERDOSE [None]
